FAERS Safety Report 6945141-X (Version None)
Quarter: 2010Q3

REPORT INFORMATION
  Report Type: 
  Country: None (occurrence: None)
  Receive Date: 20100827
  Receipt Date: 20100818
  Transmission Date: 20110219
  Serious: Yes (Hospitalization, Other)
  Sender: FDA-Public Use
  Company Number: US-AMGEN-QUU432264

PATIENT
  Sex: Female

DRUGS (3)
  1. ENBREL [Suspect]
     Indication: RHEUMATOID ARTHRITIS
     Route: 058
     Dates: start: 20061009
  2. METHOTREXATE [Concomitant]
     Route: 048
  3. INDOCIN [Concomitant]

REACTIONS (16)
  - ABDOMINAL PAIN UPPER [None]
  - ANXIETY [None]
  - ARTHRALGIA [None]
  - BACK PAIN [None]
  - CELLULITIS [None]
  - DEPRESSION [None]
  - FINGER DEFORMITY [None]
  - INJECTION SITE ERYTHEMA [None]
  - INJECTION SITE PRURITUS [None]
  - JOINT CREPITATION [None]
  - JOINT STIFFNESS [None]
  - MUSCULAR WEAKNESS [None]
  - NECK PAIN [None]
  - NODULE ON EXTREMITY [None]
  - PAIN IN EXTREMITY [None]
  - RHEUMATOID ARTHRITIS [None]
